FAERS Safety Report 9486152 (Version 1)
Quarter: 2013Q3

REPORT INFORMATION
  Report Type: Other
  Country: US (occurrence: US)
  Receive Date: 20130829
  Receipt Date: 20130829
  Transmission Date: 20140515
  Serious: Yes (Disabling)
  Sender: FDA-Public Use
  Company Number: US-ENDO PHARMACEUTICALS INC.-METO20130052

PATIENT
  Sex: Female

DRUGS (3)
  1. METOCLOPRAMIDE HYDROCHLORIDE [Suspect]
     Indication: EXPLORATORY OPERATION
     Dosage: UNKNOWN
     Route: 048
     Dates: start: 200411, end: 200811
  2. METOCLOPRAMIDE HYDROCHLORIDE [Suspect]
     Indication: DIABETIC GASTROPARESIS
  3. METOCLOPRAMIDE HYDROCHLORIDE [Suspect]
     Indication: GASTROINTESTINAL OBSTRUCTION

REACTIONS (4)
  - Parkinson^s disease [Not Recovered/Not Resolved]
  - Tardive dyskinesia [Not Recovered/Not Resolved]
  - Extrapyramidal disorder [Not Recovered/Not Resolved]
  - Incorrect drug administration duration [Not Recovered/Not Resolved]
